FAERS Safety Report 7543689-0 (Version None)
Quarter: 2011Q2

REPORT INFORMATION
  Report Type: 
  Country: None (occurrence: None)
  Receive Date: 20110613
  Receipt Date: 20030130
  Transmission Date: 20111010
  Serious: Yes (Other)
  Sender: FDA-Public Use
  Company Number: PHHO2003CA01776

PATIENT
  Sex: Male

DRUGS (1)
  1. CLOZARIL [Suspect]
     Dates: start: 19980504, end: 20030128

REACTIONS (2)
  - PSYCHOTIC DISORDER [None]
  - NEUROLOGICAL SYMPTOM [None]
